FAERS Safety Report 20591812 (Version 2)
Quarter: 2022Q3

REPORT INFORMATION
  Report Type: Spontaneous
  Country: US (occurrence: US)
  Receive Date: 20220314
  Receipt Date: 20220831
  Transmission Date: 20221027
  Serious: No
  Sender: FDA-Public Use
  Company Number: US-PFIZER INC-202200257623

PATIENT
  Age: 61 Year
  Sex: Female

DRUGS (1)
  1. XELJANZ [Suspect]
     Active Substance: TOFACITINIB CITRATE
     Indication: Rheumatoid arthritis
     Dosage: 5 MG, 2X/DAY (5 MG BY MOUTH TAKE TWICE A DAY WITH FOOD)
     Route: 048
     Dates: start: 20211012

REACTIONS (5)
  - Product dose omission issue [Unknown]
  - COVID-19 [Recovered/Resolved]
  - Ageusia [Not Recovered/Not Resolved]
  - Herpes zoster [Recovered/Resolved]
  - Influenza [Recovered/Resolved]

NARRATIVE: CASE EVENT DATE: 20220101
